FAERS Safety Report 6165325-0 (Version None)
Quarter: 2009Q2

REPORT INFORMATION
  Report Type: 
  Country: None (occurrence: None)
  Receive Date: 20090423
  Receipt Date: 20090414
  Transmission Date: 20091009
  Serious: Yes (Hospitalization, Other)
  Sender: FDA-Public Use
  Company Number: US-ABBOTT-09P-163-0560855-00

PATIENT
  Sex: Male
  Weight: 61.29 kg

DRUGS (19)
  1. TRICOR [Suspect]
     Indication: DRUG USE FOR UNKNOWN INDICATION
  2. SORIATANE [Suspect]
     Indication: PSORIASIS
     Dates: start: 20080301, end: 20081120
  3. ADVAIR HFA [Suspect]
     Indication: DRUG USE FOR UNKNOWN INDICATION
     Dosage: 100/50
  4. SINGULAIR [Suspect]
     Indication: DRUG USE FOR UNKNOWN INDICATION
  5. ASPIRIN [Suspect]
     Indication: ANTIPLATELET THERAPY
  6. ASPIRIN [Suspect]
  7. ALBUTEROL [Concomitant]
     Indication: ASTHMA
  8. ZETIA [Concomitant]
     Indication: DYSLIPIDAEMIA
  9. ACITRETIN [Concomitant]
     Indication: DRUG USE FOR UNKNOWN INDICATION
  10. LIDOCAINE [Concomitant]
     Indication: DRUG USE FOR UNKNOWN INDICATION
     Dosage: 1%
     Route: 058
     Dates: start: 20080609, end: 20080609
  11. VERSED [Concomitant]
     Indication: DRUG USE FOR UNKNOWN INDICATION
     Dosage: X2
     Route: 042
     Dates: start: 20080609, end: 20080609
  12. FENTANYL [Concomitant]
     Indication: DRUG USE FOR UNKNOWN INDICATION
     Dosage: X 2
     Route: 042
     Dates: start: 20080609, end: 20080609
  13. FENTANYL [Concomitant]
     Route: 042
     Dates: start: 20080609, end: 20080609
  14. NITROGLYCERIN [Concomitant]
     Indication: DRUG USE FOR UNKNOWN INDICATION
     Dosage: IC CHG
     Dates: start: 20080609, end: 20080609
  15. NITROGLYCERIN [Concomitant]
     Dosage: IC
     Dates: start: 20080609, end: 20080609
  16. ANGIOMAX [Concomitant]
     Indication: DRUG USE FOR UNKNOWN INDICATION
     Route: 040
     Dates: start: 20080609, end: 20080609
  17. ANGIOMAX [Concomitant]
     Route: 042
     Dates: start: 20080609, end: 20080609
  18. NIPRIDE [Concomitant]
     Indication: DRUG USE FOR UNKNOWN INDICATION
     Dosage: IC
     Dates: start: 20080609, end: 20080609
  19. NIPRIDE [Concomitant]
     Dosage: IC CHG
     Dates: start: 20080609, end: 20080609

REACTIONS (7)
  - CORONARY ARTERY STENOSIS [None]
  - DYSLIPIDAEMIA [None]
  - EPISTAXIS [None]
  - HYPOTENSION [None]
  - MYOCARDIAL INFARCTION [None]
  - VENTRICULAR HYPOKINESIA [None]
  - WEIGHT DECREASED [None]
